FAERS Safety Report 12307259 (Version 1)
Quarter: 2016Q2

REPORT INFORMATION
  Report Type: Spontaneous
  Country: US (occurrence: US)
  Receive Date: 20160426
  Receipt Date: 20160426
  Transmission Date: 20160815
  Serious: No
  Sender: FDA-Public Use
  Company Number: US-TEVA-650930USA

PATIENT
  Sex: Male

DRUGS (2)
  1. PROAIR HFA [Suspect]
     Active Substance: ALBUTEROL SULFATE
     Indication: RESPIRATORY TRACT CONGESTION
     Dosage: 2 PUFFS EVERY 6 HOURS AS NEEDED
     Dates: start: 20160406
  2. PREDNISONE. [Concomitant]
     Active Substance: PREDNISONE

REACTIONS (5)
  - Product use issue [Unknown]
  - Dysphonia [Unknown]
  - Laryngitis [Unknown]
  - Wrong technique in product usage process [Recovered/Resolved]
  - Dyspnoea [Unknown]
